FAERS Safety Report 7913220-6 (Version None)
Quarter: 2011Q4

REPORT INFORMATION
  Report Type: 
  Country: None (occurrence: None)
  Receive Date: 20111114
  Receipt Date: 20111031
  Transmission Date: 20120403
  Serious: Yes (Other)
  Sender: FDA-Public Use
  Company Number: PHHY2011DE07389

PATIENT
  Sex: Female

DRUGS (1)
  1. EXJADE [Suspect]
     Indication: MYELODYSPLASTIC SYNDROME
     Dosage: 1000 MG, DAILY
     Route: 048
     Dates: start: 20081001

REACTIONS (6)
  - OSTEOARTHRITIS [None]
  - CONSTIPATION [None]
  - ONYCHOCLASIS [None]
  - DRY SKIN [None]
  - ALOPECIA [None]
  - PRURITUS [None]
